FAERS Safety Report 10252194 (Version 1)
Quarter: 2014Q2

REPORT INFORMATION
  Report Type: Spontaneous
  Country: GB (occurrence: GB)
  Receive Date: 20140623
  Receipt Date: 20140623
  Transmission Date: 20141212
  Serious: Yes (Other)
  Sender: FDA-Public Use
  Company Number: GB-JNJFOC-20140612832

PATIENT
  Age: 66 Year
  Sex: Male
  Weight: 103.8 kg

DRUGS (5)
  1. XARELTO [Suspect]
     Indication: THROMBOSIS PROPHYLAXIS
     Route: 048
     Dates: start: 20140527, end: 20140604
  2. PLENDIL [Concomitant]
     Route: 065
  3. OMEPRAZOLE [Concomitant]
     Route: 065
  4. ALLOPURINOL [Concomitant]
     Route: 065
  5. FOSTER [Concomitant]
     Route: 065

REACTIONS (8)
  - Muscle spasms [Recovering/Resolving]
  - Feeling abnormal [Unknown]
  - Alopecia [Unknown]
  - Joint stiffness [Recovering/Resolving]
  - Psoriasis [Recovering/Resolving]
  - Skin haemorrhage [Unknown]
  - Skin fissures [Unknown]
  - Wound secretion [Unknown]
